FAERS Safety Report 7586123-7 (Version None)
Quarter: 2011Q2

REPORT INFORMATION
  Report Type: 
  Country: None (occurrence: None)
  Receive Date: 20110629
  Receipt Date: 20110629
  Transmission Date: 20111010
  Serious: Yes (Other)
  Sender: FDA-Public Use
  Company Number: None

PATIENT
  Age: 53 Year
  Sex: Female
  Weight: 89.3586 kg

DRUGS (4)
  1. DILANTIN [Suspect]
     Indication: CONVULSION
     Dosage: 100MG 2 TWICE DAILY
     Dates: start: 20040401, end: 20040601
  2. DILANTIN [Suspect]
     Indication: LOSS OF CONSCIOUSNESS
     Dosage: 100MG 2 TWICE DAILY
     Dates: start: 20040401, end: 20040601
  3. VIMPAT [Suspect]
     Indication: LOSS OF CONSCIOUSNESS
     Dosage: 200MG TWICE DAILY
     Dates: start: 20110401, end: 20110501
  4. VIMPAT [Suspect]
     Indication: CONVULSION
     Dosage: 200MG TWICE DAILY
     Dates: start: 20110401, end: 20110501

REACTIONS (9)
  - PALPITATIONS [None]
  - HOSTILITY [None]
  - GINGIVAL DISORDER [None]
  - CHILLS [None]
  - RASH [None]
  - ABDOMINAL DISTENSION [None]
  - PRURITUS [None]
  - HYPOAESTHESIA ORAL [None]
  - BALANCE DISORDER [None]
